FAERS Safety Report 8585345 (Version 2)
Quarter: 2013Q4

REPORT INFORMATION
  Report Type: Spontaneous
  Country: CN (occurrence: CN)
  Receive Date: 20120530
  Receipt Date: 20131101
  Transmission Date: 20140711
  Serious: Yes (Other)
  Sender: FDA-Public Use
  Company Number: PHHY2012CN045595

PATIENT
  Age: 32 Year
  Sex: Female
  Weight: 90 kg

DRUGS (5)
  1. SANDIMMUN NEORAL / OL [Suspect]
     Indication: TRANSPLANT REJECTION
     Dosage: 1 U, QD
     Route: 065
     Dates: start: 20080722, end: 20120606
  2. SANDIMMUN NEORAL / OL [Suspect]
     Dosage: 212.5 MG, (100 MG IN THE MORNING AND 112.5 MG IN THE EVENING)
  3. MEDROL [Suspect]
     Indication: PROPHYLAXIS AGAINST TRANSPLANT REJECTION
     Dosage: 4 MG, UNK
     Route: 048
     Dates: start: 20080722, end: 200905
  4. CELLCEPT [Concomitant]
     Indication: PROPHYLAXIS AGAINST TRANSPLANT REJECTION
     Dosage: 250 MG, UNK
     Dates: start: 20080722
  5. CELLCEPT [Concomitant]
     Dosage: 750 MG, BID

REACTIONS (3)
  - Osteonecrosis [Recovered/Resolved]
  - Pain in extremity [Recovered/Resolved]
  - Blood bilirubin increased [Unknown]
